FAERS Safety Report 9033070 (Version 7)
Quarter: 2013Q2

REPORT INFORMATION
  Report Type: Spontaneous
  Country: GB (occurrence: GB)
  Receive Date: 20130128
  Receipt Date: 20130510
  Transmission Date: 20140414
  Serious: Yes (Hospitalization, Other)
  Sender: FDA-Public Use
  Company Number: PHFR2013GB000680

PATIENT
  Age: 70 Year
  Sex: Female

DRUGS (7)
  1. CLOZARIL [Suspect]
     Indication: SCHIZOPHRENIA
     Dosage: 250 MG, DAILY DOSE
     Route: 048
     Dates: start: 20050104, end: 20130115
  2. VENLAFAXINE [Concomitant]
     Indication: DEPRESSION
     Dosage: 150 MG, UNK
     Route: 048
  3. SIMVASTATIN [Concomitant]
     Dosage: 40 MG, UNK
     Route: 048
  4. DILTIAZEM [Concomitant]
     Dosage: 90 MG, UNK
     Route: 048
  5. BETAHISTINE [Concomitant]
     Dosage: 24 MG, UNK
     Route: 048
  6. TIOTROPIUM [Concomitant]
     Dosage: 18 UG, UNK
     Route: 048
  7. FUROSEMIDE [Concomitant]
     Dosage: 20 MG, QD

REACTIONS (7)
  - Mouth ulceration [Recovered/Resolved]
  - Chronic obstructive pulmonary disease [Recovered/Resolved]
  - Vomiting [Recovered/Resolved]
  - Neutropenia [Recovered/Resolved]
  - White blood cell count decreased [Recovered/Resolved]
  - Fatigue [Recovered/Resolved]
  - Differential white blood cell count normal [Recovering/Resolving]
